FAERS Safety Report 4825088-5 (Version None)
Quarter: 2005Q4

REPORT INFORMATION
  Report Type: 
  Country: None (occurrence: None)
  Receive Date: 20051108
  Receipt Date: 20051026
  Transmission Date: 20060501
  Serious: Yes (Life-Threatening)
  Sender: FDA-Public Use
  Company Number: IR-2005-022271

PATIENT
  Age: 29 Year
  Sex: Female
  Weight: 52 kg

DRUGS (17)
  1. ULTRAVIST 300 [Suspect]
     Indication: SCAN BRAIN
     Dosage: 50 M1, 1 DOSE, INTRAVENOUS
     Route: 042
     Dates: start: 20051017, end: 20051017
  2. DOPAMINE HCL [Concomitant]
  3. DOBUTAMINE (DOBUTAMINE) [Concomitant]
  4. CEFTRIAXONE [Concomitant]
  5. CLINDAMYCIN [Concomitant]
  6. CHARCOL, ACTIVATED (CHARCOL, ACTIVATED) [Concomitant]
  7. SORBITOL (SORBITOL) [Concomitant]
  8. PACKED CELL (RED BLOOD CELLS) [Concomitant]
  9. CALCIUM GLUCONAE (CALCIUM GLUCONATE) [Concomitant]
  10. HEPARIN [Concomitant]
  11. RANITIDINE [Concomitant]
  12. DEXAMETASON [Concomitant]
  13. MAGNESIUM SULFATE [Concomitant]
  14. METRONIDAZOLE [Concomitant]
  15. CALCIUM CARBONATE [Concomitant]
  16. LACTULOSE [Concomitant]
  17. ALUMINUM HYDROXIDE TAB [Concomitant]

REACTIONS (2)
  - ACUTE RESPIRATORY DISTRESS SYNDROME [None]
  - CYANOSIS [None]
